FAERS Safety Report 18456421 (Version 1)
Quarter: 2020Q4

REPORT INFORMATION
  Report Type: Spontaneous
  Country: GB (occurrence: GB)
  Receive Date: 20201103
  Receipt Date: 20201103
  Transmission Date: 20210114
  Serious: Yes (Other)
  Sender: FDA-Public Use
  Company Number: GB-TEVA-2020-GB-1845366

PATIENT
  Age: 39 Year
  Sex: Female
  Weight: 82.55 kg

DRUGS (2)
  1. AJOVY [Suspect]
     Active Substance: FREMANEZUMAB-VFRM
     Indication: MIGRAINE
     Route: 051
     Dates: start: 20200316, end: 20200616
  2. LYRICA [Concomitant]
     Active Substance: PREGABALIN

REACTIONS (6)
  - Nausea [Recovering/Resolving]
  - Constipation [Recovered/Resolved]
  - Arthralgia [Recovering/Resolving]
  - Muscle fatigue [Recovered/Resolved]
  - Fatigue [Recovered/Resolved with Sequelae]
  - Dyspnoea [Recovered/Resolved]

NARRATIVE: CASE EVENT DATE: 20200316
